FAERS Safety Report 12776429 (Version 3)
Quarter: 2017Q4

REPORT INFORMATION
  Report Type: Report from Study
  Country: BR (occurrence: BR)
  Receive Date: 20160923
  Receipt Date: 20171023
  Transmission Date: 20180320
  Serious: Yes (Hospitalization)
  Sender: FDA-Public Use
  Company Number: PHHY2016BR129740

PATIENT
  Sex: Female
  Weight: 90 kg

DRUGS (6)
  1. ONBREZ BREEZHALER [Suspect]
     Active Substance: INDACATEROL
     Indication: EMPHYSEMA
  2. ULTIBRO BREEZHALER [Suspect]
     Active Substance: GLYCOPYRRONIUM\INDACATEROL
     Indication: BRONCHITIS CHRONIC
  3. ONBREZ BREEZHALER [Suspect]
     Active Substance: INDACATEROL
     Indication: BRONCHITIS CHRONIC
  4. TIROX [Concomitant]
     Indication: PRODUCT USED FOR UNKNOWN INDICATION
     Route: 065
  5. ONBREZ BREEZHALER [Suspect]
     Active Substance: INDACATEROL
     Indication: CHRONIC OBSTRUCTIVE PULMONARY DISEASE
     Dosage: 1 DF, QD (ONCE DAILY IN THE MORNING)
     Route: 055
  6. ULTIBRO BREEZHALER [Suspect]
     Active Substance: GLYCOPYRRONIUM\INDACATEROL
     Indication: EMPHYSEMA
     Dosage: 1 DF, QD
     Route: 055

REACTIONS (12)
  - Abnormal behaviour [Unknown]
  - Underdose [Unknown]
  - Hypoacusis [Unknown]
  - Dyspnoea [Recovering/Resolving]
  - Product physical issue [Unknown]
  - Body height decreased [Unknown]
  - Thymus disorder [Unknown]
  - Cough [Not Recovered/Not Resolved]
  - Alcoholism [Recovering/Resolving]
  - Product blister packaging issue [Unknown]
  - Weight increased [Unknown]
  - Wrong technique in product usage process [Unknown]
